FAERS Safety Report 15331649 (Version 2)
Quarter: 2018Q3

REPORT INFORMATION
  Report Type: Report from Study
  Country: US (occurrence: US)
  Receive Date: 20180829
  Receipt Date: 20180926
  Transmission Date: 20181010
  Serious: Yes (Hospitalization, Other)
  Sender: FDA-Public Use
  Company Number: US-SA-2018SA231302

PATIENT
  Age: 59 Year
  Sex: Female

DRUGS (16)
  1. ALEMTUZUMAB [Suspect]
     Active Substance: ALEMTUZUMAB
     Indication: MULTIPLE SCLEROSIS
     Dosage: 12 MG, QD
     Route: 041
     Dates: start: 20180806, end: 20180808
  2. PREMARIN [Concomitant]
     Active Substance: ESTROGENS, CONJUGATED
     Dosage: APPLY 0.5 APPLICATORFUL BY VAGINAL ROUTE AS NEEDED FOR 1 DAY
  3. VALACYCLOVIR [VALACICLOVIR] [Concomitant]
     Dosage: 500 MG, BID
     Route: 048
  4. CALCIUM [Concomitant]
     Active Substance: CALCIUM
     Dosage: 1 DF
  5. CLONAZEPAM. [Concomitant]
     Active Substance: CLONAZEPAM
     Dosage: 0.5 MG
     Route: 048
     Dates: start: 20180511
  6. DESMOPRESSIN [Concomitant]
     Active Substance: DESMOPRESSIN
     Dosage: 0.2 MG
     Route: 048
     Dates: start: 20180720
  7. HYDROXYZINE HYDROCHLORIDE. [Concomitant]
     Active Substance: HYDROXYZINE HYDROCHLORIDE
     Dosage: 50 MG, TID
     Route: 048
     Dates: start: 20180705
  8. TERAZOSIN [Concomitant]
     Active Substance: TERAZOSIN\TERAZOSIN HYDROCHLORIDE
     Dosage: 2 MG, QD
     Route: 048
     Dates: start: 20180815
  9. TIZANIDINE. [Concomitant]
     Active Substance: TIZANIDINE
     Dosage: 4 MG, TID
     Route: 048
     Dates: start: 20180911
  10. MEPERIDINE [PETHIDINE] [Concomitant]
     Dosage: 50 MG, BID
     Route: 048
  11. IRON [Concomitant]
     Active Substance: IRON
     Dosage: 2 DF, QD
     Route: 048
  12. VITAMIN C [ASCORBIC ACID] [Concomitant]
     Dosage: 3000 MG, BID
  13. TRIMETHOPRIM. [Concomitant]
     Active Substance: TRIMETHOPRIM
     Dosage: 100 MG
     Route: 048
     Dates: start: 20180227
  14. RANITIDINE. [Concomitant]
     Active Substance: RANITIDINE
     Dosage: 150 MG, HS
     Route: 048
  15. VITAMIN D3 [Concomitant]
     Active Substance: CHOLECALCIFEROL
     Dosage: 1000 U, QID
     Route: 048
  16. ALEMTUZUMAB [Suspect]
     Active Substance: ALEMTUZUMAB
     Dosage: 12 UNK
     Route: 041
     Dates: start: 20180827

REACTIONS (6)
  - Cardiac failure congestive [Recovering/Resolving]
  - Chills [Unknown]
  - Body temperature increased [Not Recovered/Not Resolved]
  - Dyspnoea [Recovering/Resolving]
  - Oxygen saturation decreased [Recovering/Resolving]
  - Hypotension [Unknown]

NARRATIVE: CASE EVENT DATE: 201808
